FAERS Safety Report 24652577 (Version 1)
Quarter: 2024Q4

REPORT INFORMATION
  Report Type: Spontaneous
  Country: US (occurrence: None)
  Receive Date: 20241122
  Receipt Date: 20241122
  Transmission Date: 20250115
  Serious: Yes (Hospitalization)
  Sender: Public
  Company Number: None

PATIENT
  Age: 72 Year
  Sex: Male
  Weight: 91.53 kg

DRUGS (6)
  1. DARATUMUMAB\HYALURONIDASE-FIHJ [Suspect]
     Active Substance: DARATUMUMAB\HYALURONIDASE-FIHJ
     Dosage: FREQUENCY : TOTAL;?
     Dates: start: 20210921, end: 20220511
  2. DEXAMETHASONE [Suspect]
     Active Substance: DEXAMETHASONE
     Dates: end: 20220511
  3. LENALIDOMIDE [Suspect]
     Active Substance: LENALIDOMIDE
     Dates: end: 20220511
  4. APIXABAN [Concomitant]
     Active Substance: APIXABAN
  5. ASPIRIN [Concomitant]
     Active Substance: ASPIRIN
  6. METOPROLOL [Concomitant]
     Active Substance: METOPROLOL

REACTIONS (18)
  - Sepsis [None]
  - Urinary tract infection pseudomonal [None]
  - Orchitis [None]
  - Syncope [None]
  - Fall [None]
  - Loss of consciousness [None]
  - Head injury [None]
  - Skull fractured base [None]
  - Skull fracture [None]
  - Subarachnoid haemorrhage [None]
  - Rib fracture [None]
  - Compression fracture [None]
  - Blood culture positive [None]
  - Staphylococcal infection [None]
  - Atrial fibrillation [None]
  - Tachycardia [None]
  - Leukocytosis [None]
  - Chills [None]

NARRATIVE: CASE EVENT DATE: 20220512
